FAERS Safety Report 19465378 (Version 2)
Quarter: 2021Q4

REPORT INFORMATION
  Report Type: Spontaneous
  Country: US (occurrence: US)
  Receive Date: 20210624
  Receipt Date: 20211208
  Transmission Date: 20220303
  Serious: Yes (Other)
  Sender: FDA-Public Use
  Company Number: US-GILEAD-2021-0537702

PATIENT
  Age: 63 Year
  Sex: Male

DRUGS (25)
  1. ATRIPLA [Suspect]
     Active Substance: EFAVIRENZ\EMTRICITABINE\TENOFOVIR DISOPROXIL FUMARATE
     Indication: HIV infection
     Dosage: UNK
     Route: 048
     Dates: start: 2013
  2. ATRIPLA [Suspect]
     Active Substance: EFAVIRENZ\EMTRICITABINE\TENOFOVIR DISOPROXIL FUMARATE
     Dosage: UNK
     Route: 048
     Dates: start: 2006
  3. TRUVADA [Suspect]
     Active Substance: EMTRICITABINE\TENOFOVIR DISOPROXIL FUMARATE
     Indication: HIV infection
     Dosage: UNK
     Route: 048
     Dates: start: 2013
  4. TRUVADA [Suspect]
     Active Substance: EMTRICITABINE\TENOFOVIR DISOPROXIL FUMARATE
     Dosage: UNK
     Route: 048
     Dates: start: 2002
  5. BIKTARVY [Concomitant]
     Active Substance: BICTEGRAVIR SODIUM\EMTRICITABINE\TENOFOVIR ALAFENAMIDE FUMARATE
  6. EMTRIVA [Concomitant]
     Active Substance: EMTRICITABINE
  7. APTIVUS [Concomitant]
     Active Substance: TIPRANAVIR
  8. COMBIVIR [Concomitant]
     Active Substance: LAMIVUDINE\ZIDOVUDINE
  9. EPIVIR [Concomitant]
     Active Substance: LAMIVUDINE
  10. EPZICOM [Concomitant]
     Active Substance: ABACAVIR SULFATE\LAMIVUDINE
  11. ISENTRESS [Concomitant]
     Active Substance: RALTEGRAVIR POTASSIUM
  12. KALETRA [Concomitant]
     Active Substance: LOPINAVIR\RITONAVIR
  13. RETROVIR [Concomitant]
     Active Substance: ZIDOVUDINE
  14. TIVICAY [Concomitant]
     Active Substance: DOLUTEGRAVIR SODIUM
  15. TRIUMEQ [Concomitant]
     Active Substance: ABACAVIR SULFATE\DOLUTEGRAVIR SODIUM\LAMIVUDINE
  16. TRIZIVIR [Concomitant]
     Active Substance: ABACAVIR SULFATE\LAMIVUDINE\ZIDOVUDINE
  17. ACETAMINOPHEN [Concomitant]
     Active Substance: ACETAMINOPHEN
  18. ELIQUIS [Concomitant]
     Active Substance: APIXABAN
  19. DARBEPOETIN ALFA [Concomitant]
     Active Substance: DARBEPOETIN ALFA
  20. DOXYCYCLINE [Concomitant]
     Active Substance: DOXYCYCLINE
  21. FLUTICASONE [Concomitant]
     Active Substance: FLUTICASONE
  22. LACTULOSE [Concomitant]
     Active Substance: LACTULOSE
  23. TAMSULOSIN [Concomitant]
     Active Substance: TAMSULOSIN
  24. METOPROLOL [Concomitant]
     Active Substance: METOPROLOL
  25. LISINOPRIL [Concomitant]
     Active Substance: LISINOPRIL

REACTIONS (10)
  - End stage renal disease [Not Recovered/Not Resolved]
  - Chronic kidney disease [Not Recovered/Not Resolved]
  - Hepatitis C [Not Recovered/Not Resolved]
  - Pain [Not Recovered/Not Resolved]
  - Emotional distress [Not Recovered/Not Resolved]
  - Anxiety [Not Recovered/Not Resolved]
  - Anhedonia [Not Recovered/Not Resolved]
  - Blood creatinine increased [Not Recovered/Not Resolved]
  - Hypertension [Not Recovered/Not Resolved]
  - Anaemia [Not Recovered/Not Resolved]

NARRATIVE: CASE EVENT DATE: 20130301
